FAERS Safety Report 24068679 (Version 1)
Quarter: 2024Q3

REPORT INFORMATION
  Report Type: Report from Study
  Country: TR (occurrence: TR)
  Receive Date: 20240710
  Receipt Date: 20240710
  Transmission Date: 20241016
  Serious: No
  Sender: ROCHE
  Company Number: TR-ROCHE-3556264

PATIENT
  Age: 58 Year
  Sex: Male

DRUGS (7)
  1. ALECTINIB [Suspect]
     Active Substance: ALECTINIB
     Indication: Non-small cell lung cancer metastatic
     Route: 048
     Dates: start: 20201109
  2. ALECTINIB [Suspect]
     Active Substance: ALECTINIB
     Route: 048
     Dates: start: 20210901
  3. ZOLEDRONIC ACID [Concomitant]
     Active Substance: ZOLEDRONIC ACID
     Indication: Metastases to bone
     Route: 042
     Dates: start: 2020, end: 20221121
  4. CISPLATIN [Concomitant]
     Active Substance: CISPLATIN
     Dates: start: 20220218, end: 20220422
  5. PEMETREXED [Concomitant]
     Active Substance: PEMETREXED
     Dates: start: 20220218, end: 20220422
  6. PEMETREXED [Concomitant]
     Active Substance: PEMETREXED
     Dates: start: 20220518, end: 20220608
  7. CARBOPLATIN [Concomitant]
     Active Substance: CARBOPLATIN
     Dates: start: 20220518, end: 20220608

REACTIONS (1)
  - Anaemia [Not Recovered/Not Resolved]

NARRATIVE: CASE EVENT DATE: 20220517
